FAERS Safety Report 9403604 (Version 1)
Quarter: 2013Q3

REPORT INFORMATION
  Report Type: Spontaneous
  Country: US (occurrence: US)
  Receive Date: 20130717
  Receipt Date: 20130717
  Transmission Date: 20140515
  Serious: Yes (Other)
  Sender: FDA-Public Use
  Company Number: US-AMGEN-USASP2013049101

PATIENT
  Age: 70 Year
  Sex: Male

DRUGS (6)
  1. NPLATE [Suspect]
     Indication: IMMUNE THROMBOCYTOPENIC PURPURA
     Dosage: 1 MUG/KG, UNK
     Dates: start: 2008
  2. INSULIN [Concomitant]
  3. METFORMIN [Concomitant]
  4. ENALAPRIL [Concomitant]
  5. LOVASTATIN [Concomitant]
  6. GLIMEPIRIDE [Concomitant]

REACTIONS (5)
  - Platelet count decreased [Recovering/Resolving]
  - Gait disturbance [Unknown]
  - Petechiae [Unknown]
  - Platelet count increased [Unknown]
  - Paraesthesia [Unknown]
